FAERS Safety Report 7865624-8 (Version None)
Quarter: 2011Q4

REPORT INFORMATION
  Report Type: 
  Country: None (occurrence: None)
  Receive Date: 20111028
  Receipt Date: 20110126
  Transmission Date: 20120403
  Serious: No
  Sender: FDA-Public Use
  Company Number: US-GLAXOSMITHKLINE-A0909466A

PATIENT
  Age: 55 Year
  Sex: Female

DRUGS (5)
  1. MAXAIR [Concomitant]
  2. ADVAIR DISKUS 100/50 [Suspect]
     Indication: ASTHMA
     Dosage: 1PUFF TWICE PER DAY
     Route: 055
     Dates: start: 20101215, end: 20110120
  3. FEMHRT [Concomitant]
  4. TRIAMTERENE AND HYDROCHLOROTHIAZIDE [Concomitant]
  5. LISINOPRIL [Concomitant]

REACTIONS (5)
  - HYPOAESTHESIA [None]
  - FATIGUE [None]
  - PARAESTHESIA [None]
  - MUSCULAR WEAKNESS [None]
  - ASTHENIA [None]
